FAERS Safety Report 16621614 (Version 1)
Quarter: 2019Q3

REPORT INFORMATION
  Report Type: Spontaneous
  Country: US (occurrence: US)
  Receive Date: 20190723
  Receipt Date: 20190723
  Transmission Date: 20191004
  Serious: Yes (Other)
  Sender: FDA-Public Use
  Company Number: 266035

PATIENT

DRUGS (1)
  1. MOXIFLOXACIN 5 MG/ML [Suspect]
     Active Substance: MOXIFLOXACIN
     Route: 047
     Dates: start: 20190626, end: 20190708

REACTIONS (1)
  - Corneal oedema [Unknown]

NARRATIVE: CASE EVENT DATE: 20190626
